FAERS Safety Report 6216466-0 (Version None)
Quarter: 2009Q2

REPORT INFORMATION
  Report Type: 
  Country: None (occurrence: None)
  Receive Date: 20090605
  Receipt Date: 20090529
  Transmission Date: 20091009
  Serious: Yes (Congenital Anomaly)
  Sender: FDA-Public Use
  Company Number: NL-GILEAD-2009-0022435

PATIENT

DRUGS (2)
  1. HEPSERA [Suspect]
     Route: 064
  2. INTERFERON [Suspect]
     Route: 064

REACTIONS (1)
  - FOETAL DAMAGE [None]
